FAERS Safety Report 9350175 (Version 2)
Quarter: 2013Q3

REPORT INFORMATION
  Report Type: Report from Study
  Country: US (occurrence: US)
  Receive Date: 20130617
  Receipt Date: 20130916
  Transmission Date: 20140515
  Serious: Yes (Death, Hospitalization, Other)
  Sender: FDA-Public Use
  Company Number: US-ROCHE-1223177

PATIENT
  Age: 60 Year
  Sex: Male
  Weight: 58.57 kg

DRUGS (1)
  1. AVASTIN [Suspect]
     Indication: METASTATIC RENAL CELL CARCINOMA
     Route: 042
     Dates: start: 20121001

REACTIONS (4)
  - Anal fistula [Recovering/Resolving]
  - Renal failure [Unknown]
  - Fistula [Fatal]
  - Haemorrhage [Not Recovered/Not Resolved]
